FAERS Safety Report 11343566 (Version 1)
Quarter: 2015Q3

REPORT INFORMATION
  Report Type: Report from Study
  Country: JP (occurrence: None)
  Receive Date: 20150804
  Receipt Date: 20150804
  Transmission Date: 20151125
  Serious: Yes (Death)
  Sender: FDA-Public Use
  Company Number: 2014FE02465

PATIENT
  Age: 78 Year
  Sex: Male
  Weight: 54 kg

DRUGS (7)
  1. DEGARELIX [Suspect]
     Active Substance: DEGARELIX
     Indication: PROSTATE CANCER METASTATIC
     Dosage: SINGLE
     Route: 058
     Dates: start: 20130430, end: 20130430
  2. ESTRACYT (ESTRAMUSTINE PHOSPHATE SODIUM) [Concomitant]
  3. GASTER (OMEPRAZOLE) [Concomitant]
     Active Substance: OMEPRAZOLE
  4. CASODEX [Concomitant]
     Active Substance: BICALUTAMIDE
  5. ODYNE (FLUTAMDIE) [Concomitant]
  6. PROSEXOL (ETHINYLESTRADIOL) [Concomitant]
  7. RANMARK (DENOSUMAB) [Concomitant]
     Active Substance: DENOSUMAB

REACTIONS (3)
  - Injection site swelling [None]
  - Cardiac failure [None]
  - Injection site pain [None]

NARRATIVE: CASE EVENT DATE: 20130430
